FAERS Safety Report 4659928-X (Version None)
Quarter: 2005Q2

REPORT INFORMATION
  Report Type: 
  Country: None (occurrence: None)
  Receive Date: 20050510
  Receipt Date: 20050427
  Transmission Date: 20051028
  Serious: Yes (Other)
  Sender: FDA-Public Use
  Company Number: 2005066189

PATIENT
  Age: 79 Year
  Sex: Female
  Weight: 68.0396 kg

DRUGS (3)
  1. BEXTRA [Suspect]
     Indication: ARTHRITIS
     Dosage: ORAL
     Route: 048
  2. ASPIRIN [Concomitant]
  3. ALL OTHER THERAPEUTIC PRODUCTS (ALL OTHER THERAPEUTIC PRODUCTS) [Concomitant]

REACTIONS (5)
  - BURNING SENSATION [None]
  - DRUG INEFFECTIVE [None]
  - HIP ARTHROPLASTY [None]
  - PARAESTHESIA [None]
  - SKIN IRRITATION [None]
